FAERS Safety Report 13747448 (Version 3)
Quarter: 2017Q3

REPORT INFORMATION
  Report Type: Spontaneous
  Country: US (occurrence: US)
  Receive Date: 20170712
  Receipt Date: 20170920
  Transmission Date: 20171127
  Serious: Yes (Other)
  Sender: FDA-Public Use
  Company Number: US-PFIZER INC-2017302999

PATIENT
  Age: 38 Year
  Sex: Male
  Weight: 65.77 kg

DRUGS (3)
  1. FIBERCON [Suspect]
     Active Substance: CALCIUM POLYCARBOPHIL
     Indication: BOWEL MOVEMENT IRREGULARITY
     Dosage: 2 PILLS, EVERY DAY
     Dates: start: 1997
  2. FIBERCON [Suspect]
     Active Substance: CALCIUM POLYCARBOPHIL
     Dosage: 2 DF, WEEKLY (ONCE A WEEK)
  3. FIBERCON [Suspect]
     Active Substance: CALCIUM POLYCARBOPHIL
     Dosage: 2 DF, EVERY OTHER DAY

REACTIONS (3)
  - Food allergy [Unknown]
  - Coeliac disease [Recovering/Resolving]
  - Product use issue [Not Recovered/Not Resolved]

NARRATIVE: CASE EVENT DATE: 1997
